FAERS Safety Report 6287557-3 (Version None)
Quarter: 2009Q3

REPORT INFORMATION
  Report Type: 
  Country: None (occurrence: None)
  Receive Date: 20090727
  Receipt Date: 20090715
  Transmission Date: 20100115
  Serious: Yes (Hospitalization)
  Sender: FDA-Public Use
  Company Number: 237867K09USA

PATIENT
  Age: 40 Year
  Sex: Female
  Weight: 59 kg

DRUGS (2)
  1. REBIF [Suspect]
     Indication: MULTIPLE SCLEROSIS
     Dosage: 44 MCG, 3 IN 1 WEEKS, SUBCUTANEOUS
     Route: 058
     Dates: start: 20090324, end: 20090611
  2. IBUPROFEN [Concomitant]

REACTIONS (5)
  - GAIT DISTURBANCE [None]
  - LIP PAIN [None]
  - MUSCLE SPASMS [None]
  - MUSCULAR WEAKNESS [None]
  - VIRAL INFECTION [None]
